FAERS Safety Report 21437145 (Version 1)
Quarter: 2022Q4

REPORT INFORMATION
  Report Type: Spontaneous
  Country: US (occurrence: US)
  Receive Date: 20221010
  Receipt Date: 20221010
  Transmission Date: 20230113
  Serious: Yes (Other)
  Sender: FDA-Public Use
  Company Number: US-GILEAD-2022-0600854

PATIENT
  Age: 33 Year
  Sex: Female

DRUGS (1)
  1. TRODELVY [Suspect]
     Active Substance: SACITUZUMAB GOVITECAN-HZIY
     Indication: Triple negative breast cancer
     Dosage: 7.5 MG/KG
     Route: 065
     Dates: start: 202207

REACTIONS (3)
  - Neutropenia [Unknown]
  - Fatigue [Unknown]
  - Dehydration [Unknown]
